FAERS Safety Report 4450444-7 (Version None)
Quarter: 2004Q3

REPORT INFORMATION
  Report Type: 
  Country: None (occurrence: None)
  Receive Date: 20040802
  Receipt Date: 20040130
  Transmission Date: 20050211
  Serious: Yes (Other)
  Sender: FDA-Public Use
  Company Number: US-SHR-04-020492

PATIENT
  Age: 42 Year
  Sex: Female
  Weight: 74.4 kg

DRUGS (1)
  1. MAGNEVIST [Suspect]
     Indication: NUCLEAR MAGNETIC RESONANCE IMAGING
     Dosage: 15 M1, 1 DOSE, INTRAVENOUS
     Route: 042
     Dates: start: 20040130, end: 20040130

REACTIONS (6)
  - DRUG HYPERSENSITIVITY [None]
  - FLUSHING [None]
  - HYPOAESTHESIA ORAL [None]
  - NAUSEA [None]
  - PALPITATIONS [None]
  - WHEEZING [None]
